FAERS Safety Report 4582619-0 (Version None)
Quarter: 2005Q1

REPORT INFORMATION
  Report Type: 
  Country: None (occurrence: None)
  Receive Date: 20050211
  Receipt Date: 20050211
  Transmission Date: 20050727
  Serious: Yes (Other)
  Sender: FDA-Public Use
  Company Number: None

PATIENT
  Age: 70 Year
  Sex: Female
  Weight: 63.5036 kg

DRUGS (2)
  1. ADVIL [Suspect]
     Indication: ARTHRALGIA
     Dosage: 200 MG  4 X DAILY X 7 ORAL ; 200 MG AS NEEDED ORAL
     Route: 048
     Dates: start: 20040126, end: 20040914
  2. ADVIL [Suspect]
     Indication: DENTAL OPERATION
     Dosage: 200 MG  4 X DAILY X 7 ORAL ; 200 MG AS NEEDED ORAL
     Route: 048
     Dates: start: 20040126, end: 20040914

REACTIONS (9)
  - DRY SKIN [None]
  - ERYTHEMA [None]
  - FLUID RETENTION [None]
  - HYPERAESTHESIA [None]
  - PRURITUS [None]
  - RASH [None]
  - SKIN BURNING SENSATION [None]
  - SOMNOLENCE [None]
  - VISION BLURRED [None]
